FAERS Safety Report 6140326-7 (Version None)
Quarter: 2009Q2

REPORT INFORMATION
  Report Type: 
  Country: None (occurrence: None)
  Receive Date: 20090401
  Receipt Date: 20090319
  Transmission Date: 20091009
  Serious: Yes (Hospitalization, Other)
  Sender: FDA-Public Use
  Company Number: TR-ELI_LILLY_AND_COMPANY-TR200901003384

PATIENT
  Age: 15 Year
  Weight: 80 kg

DRUGS (3)
  1. STRATTERA [Suspect]
     Dates: start: 20081201
  2. STRATTERA [Suspect]
     Dosage: 480 G, ONCE (8X 60 MG CAPSULES)
     Route: 048
     Dates: start: 20090119
  3. RITALIN [Concomitant]
     Dosage: 100 MG, ONCE (10X 10MG TABLETS)
     Route: 048
     Dates: start: 20090119

REACTIONS (3)
  - ACUTE STRESS DISORDER [None]
  - INTENTIONAL OVERDOSE [None]
  - SUICIDE ATTEMPT [None]
